FAERS Safety Report 14422204 (Version 2)
Quarter: 2018Q1

REPORT INFORMATION
  Report Type: Report from Study
  Country: US (occurrence: US)
  Receive Date: 20180123
  Receipt Date: 20180314
  Transmission Date: 20180509
  Serious: Yes (Death, Other)
  Sender: FDA-Public Use
  Company Number: US-AMGEN-USASL2018007487

PATIENT

DRUGS (1)
  1. PROLIA [Suspect]
     Active Substance: DENOSUMAB
     Indication: PRODUCT USED FOR UNKNOWN INDICATION
     Dosage: 60 MG, Q6MO
     Route: 065

REACTIONS (6)
  - Hypertension [Fatal]
  - Chronic obstructive pulmonary disease [Fatal]
  - Cor pulmonale chronic [Fatal]
  - Arteriosclerosis [Fatal]
  - Hypothyroidism [Fatal]
  - Tobacco abuse [Fatal]
